FAERS Safety Report 14573055 (Version 2)
Quarter: 2018Q1

REPORT INFORMATION
  Report Type: Spontaneous
  Country: BE (occurrence: BE)
  Receive Date: 20180226
  Receipt Date: 20180305
  Transmission Date: 20180509
  Serious: Yes (Other)
  Sender: FDA-Public Use
  Company Number: BE-CURIUM PHARMACEUTICALS-201800025

PATIENT
  Age: 72 Year
  Sex: Male
  Weight: 72 kg

DRUGS (3)
  1. TECHNESCAN HDP [Suspect]
     Active Substance: TECHNETIUM TC-99M OXIDRONATE
     Indication: RADIOISOTOPE SCAN
     Route: 042
     Dates: start: 20180201, end: 20180201
  2. TECHNESCAN HDP [Suspect]
     Active Substance: TECHNETIUM TC-99M OXIDRONATE
     Indication: RADIOISOTOPE SCAN
     Route: 042
     Dates: start: 20121202, end: 20121202
  3. DRYTEC (TECHNETIUM TC99M GENERATOR) [Concomitant]
     Active Substance: TECHNETIUM TC-99M SODIUM PERTECHNETATE
     Indication: RADIOISOTOPE SCAN
     Route: 042
     Dates: start: 20180201, end: 20180201

REACTIONS (2)
  - Medication error [Recovered/Resolved]
  - Dermatitis allergic [Recovering/Resolving]

NARRATIVE: CASE EVENT DATE: 20121202
